FAERS Safety Report 6309159-2 (Version None)
Quarter: 2009Q3

REPORT INFORMATION
  Report Type: 
  Country: None (occurrence: None)
  Receive Date: 20090814
  Receipt Date: 20090519
  Transmission Date: 20100115
  Serious: No
  Sender: FDA-Public Use
  Company Number: A0785049A

PATIENT
  Age: 70 Year
  Sex: Female

DRUGS (5)
  1. COREG CR [Suspect]
     Dosage: 80MG PER DAY
     Route: 048
  2. SYNTHROID [Concomitant]
  3. LEVODOPA [Concomitant]
  4. ALDOMET [Concomitant]
     Indication: PARKINSONISM
  5. METHYLDOPA [Concomitant]
     Indication: PARKINSONISM

REACTIONS (4)
  - BLEPHAROSPASM [None]
  - FLATULENCE [None]
  - GASTROINTESTINAL PAIN [None]
  - RASH ERYTHEMATOUS [None]
